FAERS Safety Report 19804066 (Version 1)
Quarter: 2021Q3

REPORT INFORMATION
  Report Type: Spontaneous
  Country: US (occurrence: US)
  Receive Date: 20210908
  Receipt Date: 20210908
  Transmission Date: 20211014
  Serious: No
  Sender: FDA-Public Use
  Company Number: US-TARO-2021TAR00296

PATIENT

DRUGS (2)
  1. WARFARIN [Suspect]
     Active Substance: WARFARIN
     Indication: AORTIC VALVE REPLACEMENT
     Dosage: FOR 16 YEARS
     Route: 048
  2. WARFARIN [Suspect]
     Active Substance: WARFARIN
     Dosage: QD, 7.5 MG ONCE A DAY, OCCASIONALLY 10 MG ONCE A DAY
     Route: 048
     Dates: start: 202009, end: 2021

REACTIONS (1)
  - Therapeutic product effect decreased [Unknown]

NARRATIVE: CASE EVENT DATE: 202101
